FAERS Safety Report 10446604 (Version 2)
Quarter: 2015Q2

REPORT INFORMATION
  Report Type: Spontaneous
  Country: MX (occurrence: MX)
  Receive Date: 20140911
  Receipt Date: 20150626
  Transmission Date: 20150821
  Serious: Yes (Death, Hospitalization)
  Sender: FDA-Public Use
  Company Number: MX-UCBSA-2014011036

PATIENT
  Age: 48 Year
  Sex: Female
  Weight: 70 kg

DRUGS (2)
  1. KEPPRA [Suspect]
     Active Substance: LEVETIRACETAM
     Indication: PROPHYLAXIS
     Dosage: 500 MG, 2X/DAY (BID)  (FOR EVERY 12 HOURS)
     Route: 048
     Dates: start: 20130601, end: 20140814
  2. KEPPRA [Suspect]
     Active Substance: LEVETIRACETAM
     Indication: OFF LABEL USE
     Dosage: UNK
     Route: 042
     Dates: start: 20140815, end: 20140826

REACTIONS (2)
  - Off label use [Unknown]
  - Glioblastoma [Fatal]

NARRATIVE: CASE EVENT DATE: 20130601
